FAERS Safety Report 18652401 (Version 1)
Quarter: 2020Q4

REPORT INFORMATION
  Report Type: Spontaneous
  Country: BR (occurrence: BR)
  Receive Date: 20201222
  Receipt Date: 20201222
  Transmission Date: 20210114
  Serious: Yes (Other)
  Sender: FDA-Public Use
  Company Number: BR-PURDUE-USA-2020-0191941

PATIENT
  Age: 70 Year
  Sex: Female

DRUGS (6)
  1. OXYCONTIN [Suspect]
     Active Substance: OXYCODONE HYDROCHLORIDE
     Indication: INTERVERTEBRAL DISC PROTRUSION
  2. IBUPROFEN. [Concomitant]
     Active Substance: IBUPROFEN
     Indication: PAIN
     Dosage: UNK
  3. ALPRAZOLAM. [Concomitant]
     Active Substance: ALPRAZOLAM
     Indication: SLEEP DISORDER
     Dosage: UNK
  4. OXYCONTIN [Suspect]
     Active Substance: OXYCODONE HYDROCHLORIDE
     Indication: SPINAL DISORDER
     Dosage: 1 TABLET, DAILY (STRENGTH 20 MG)
     Route: 048
  5. OXYCONTIN [Suspect]
     Active Substance: OXYCODONE HYDROCHLORIDE
     Indication: OSTEOARTHRITIS
  6. LISADOR DIP [Concomitant]
     Indication: PAIN
     Dosage: UNK

REACTIONS (7)
  - Nightmare [Unknown]
  - Hypotension [Unknown]
  - Tachyarrhythmia [Unknown]
  - Photopsia [Unknown]
  - Dyspnoea [Unknown]
  - Tremor [Unknown]
  - Headache [Unknown]
